FAERS Safety Report 14973537 (Version 1)
Quarter: 2018Q2

REPORT INFORMATION
  Report Type: Spontaneous
  Country: US (occurrence: US)
  Receive Date: 20180605
  Receipt Date: 20180605
  Transmission Date: 20180711
  Serious: No
  Sender: FDA-Public Use
  Company Number: US-MYLANLABS-2018M1034005

PATIENT
  Sex: Female
  Weight: 98 kg

DRUGS (1)
  1. FENTANYL TRANSDERMAL SYSTEM [Suspect]
     Active Substance: FENTANYL
     Indication: PAIN
     Dosage: UNK
     Route: 062
     Dates: start: 20180516

REACTIONS (5)
  - Drug ineffective [Recovering/Resolving]
  - Product quality issue [Recovering/Resolving]
  - Frustration tolerance decreased [Unknown]
  - Wrong technique in product usage process [Unknown]
  - Product adhesion issue [Recovering/Resolving]

NARRATIVE: CASE EVENT DATE: 20180516
